FAERS Safety Report 13225594 (Version 1)
Quarter: 2017Q1

REPORT INFORMATION
  Report Type: Spontaneous
  Country: None (occurrence: US)
  Receive Date: 20170211
  Receipt Date: 20170211
  Transmission Date: 20170428
  Serious: Yes (Hospitalization)
  Sender: FDA-Public Use
  Company Number: None

PATIENT
  Age: 62 Year
  Sex: Female
  Weight: 80.91 kg

DRUGS (1)
  1. ERBITUX [Suspect]
     Active Substance: CETUXIMAB
     Dates: end: 20170124

REACTIONS (9)
  - Dysphagia [None]
  - Oral candidiasis [None]
  - Hypophagia [None]
  - Mouth ulceration [None]
  - Hypersomnia [None]
  - Dehydration [None]
  - Oesophageal candidiasis [None]
  - Bacterial infection [None]
  - Pyrexia [None]

NARRATIVE: CASE EVENT DATE: 20170128
